FAERS Safety Report 8790344 (Version 2)
Quarter: 2013Q1

REPORT INFORMATION
  Report Type: Report from Study
  Country: FR (occurrence: FR)
  Receive Date: 20120917
  Receipt Date: 20130107
  Transmission Date: 20140127
  Serious: Yes (Other)
  Sender: FDA-Public Use
  Company Number: FR-JNJFOC-20120903526

PATIENT
  Sex: Male
  Weight: 32.3 kg

DRUGS (2)
  1. REMICADE [Suspect]
     Indication: CROHN^S DISEASE
     Route: 042
     Dates: start: 20100621
  2. ENTERAL NUTRITION [Concomitant]

REACTIONS (1)
  - Fungal skin infection [Recovered/Resolved with Sequelae]
